FAERS Safety Report 25064989 (Version 1)
Quarter: 2025Q1

REPORT INFORMATION
  Report Type: Spontaneous
  Country: US (occurrence: US)
  Receive Date: 20250311
  Receipt Date: 20250311
  Transmission Date: 20250409
  Serious: Yes (Death, Other)
  Sender: AMGEN
  Company Number: US-AMGEN-USASP2025044206

PATIENT
  Sex: Female

DRUGS (5)
  1. RITUXIMAB [Suspect]
     Active Substance: RITUXIMAB
     Indication: Systemic scleroderma
     Route: 065
  2. ALLOPURINOL [Concomitant]
     Active Substance: ALLOPURINOL
     Indication: Gout
  3. LETROZOLE [Concomitant]
     Active Substance: LETROZOLE
     Indication: Breast cancer
  4. TAMOXIFEN [Concomitant]
     Active Substance: TAMOXIFEN
     Indication: Breast cancer
  5. CAPTOPRIL [Concomitant]
     Active Substance: CAPTOPRIL
     Indication: Scleroderma renal crisis

REACTIONS (7)
  - Death [Fatal]
  - Thrombotic microangiopathy [Unknown]
  - Cardiorenal syndrome [Unknown]
  - Acute kidney injury [Unknown]
  - Hypervolaemia [Unknown]
  - Pleural effusion [Unknown]
  - Off label use [Unknown]
